FAERS Safety Report 17765209 (Version 1)
Quarter: 2020Q2

REPORT INFORMATION
  Report Type: Spontaneous
  Country: CN (occurrence: CN)
  Receive Date: 20200511
  Receipt Date: 20200511
  Transmission Date: 20200714
  Serious: Yes (Other)
  Sender: FDA-Public Use
  Company Number: CN-JNJFOC-20200509556

PATIENT
  Age: 47 Year
  Sex: Male
  Weight: 59 kg

DRUGS (1)
  1. RISPERDAL [Suspect]
     Active Substance: RISPERIDONE
     Indication: INTELLECTUAL DISABILITY
     Route: 048
     Dates: start: 20200408, end: 20200507

REACTIONS (5)
  - Off label use [Unknown]
  - Abdominal distension [Recovering/Resolving]
  - Constipation [Recovering/Resolving]
  - Product use in unapproved indication [Unknown]
  - Blood uric acid increased [Recovering/Resolving]

NARRATIVE: CASE EVENT DATE: 20200424
